FAERS Safety Report 5008703-5 (Version None)
Quarter: 2006Q2

REPORT INFORMATION
  Report Type: 
  Country: None (occurrence: None)
  Receive Date: 20060518
  Receipt Date: 20060505
  Transmission Date: 20061013
  Serious: Yes (Disabling)
  Sender: FDA-Public Use
  Company Number: 2006051829

PATIENT
  Age: 58 Year
  Sex: Female
  Weight: 58.9676 kg

DRUGS (5)
  1. CELEBREX [Suspect]
     Indication: PLANTAR FASCIITIS
     Dosage: 200 MG (200 MG, 1 IN 1 D), ORAL
     Route: 048
     Dates: start: 20051101
  2. DETROL LA [Suspect]
     Indication: HYPERTONIC BLADDER
     Dosage: 4 MG, (4 MG, 1 IN 1 D)
     Dates: end: 20060101
  3. ANALGESICS (ANALGESICS) [Concomitant]
  4. PAXIL [Concomitant]
  5. CITRUCEL (METHYLCELLULOSE) [Concomitant]

REACTIONS (6)
  - ABASIA [None]
  - BURNING SENSATION [None]
  - CONSTIPATION [None]
  - HOT FLUSH [None]
  - HYPERTONIC BLADDER [None]
  - PLANTAR FASCIITIS [None]
